FAERS Safety Report 6202758-8 (Version None)
Quarter: 2009Q2

REPORT INFORMATION
  Report Type: 
  Country: None (occurrence: None)
  Receive Date: 20090526
  Receipt Date: 20090514
  Transmission Date: 20091009
  Serious: Yes (Hospitalization)
  Sender: FDA-Public Use
  Company Number: BR-PFIZER INC-2009189013

PATIENT
  Age: 79 Year

DRUGS (8)
  1. CP-751,871 [Suspect]
     Indication: BREAST CANCER
     Dosage: 20 MG/KG, UNK; FREQUENCY: 1X/DAY; INTERVAL: Q3W TDD 940 MG
     Route: 042
     Dates: start: 20090119
  2. EXEMESTANE [Suspect]
     Indication: BREAST CANCER
     Dosage: 25 MG, 1X/DAY
     Route: 048
     Dates: start: 20090119
  3. CAPTOPRIL [Concomitant]
     Dosage: UNK
     Route: 048
     Dates: start: 20060701
  4. HYDROCHLOROTHIAZIDE [Concomitant]
     Dosage: UNK
     Route: 048
     Dates: start: 19880701
  5. METFORMIN [Concomitant]
     Dosage: UNK
     Route: 048
     Dates: start: 20030701
  6. GLIBENCLAMIDE [Concomitant]
     Dosage: UNK
     Route: 048
     Dates: start: 19880701
  7. HYDROCORTISONE [Concomitant]
     Dosage: UNK
     Route: 047
     Dates: start: 20090204
  8. HIDROXIZIN [Concomitant]
     Dosage: UNK
     Route: 048
     Dates: start: 20090209, end: 20090315

REACTIONS (3)
  - DIABETES MELLITUS [None]
  - HYPERCALCAEMIA [None]
  - SENSORY LOSS [None]
